FAERS Safety Report 5577420-5 (Version None)
Quarter: 2007Q4

REPORT INFORMATION
  Report Type: 
  Country: None (occurrence: None)
  Receive Date: 20071228
  Receipt Date: 20071219
  Transmission Date: 20080405
  Serious: Yes (Hospitalization, Other)
  Sender: FDA-Public Use
  Company Number: US-PFIZER INC-2007107564

PATIENT

DRUGS (1)
  1. CHANTIX [Suspect]

REACTIONS (4)
  - CONSTIPATION [None]
  - IMPAIRED WORK ABILITY [None]
  - PAIN [None]
  - URINARY RETENTION [None]
